FAERS Safety Report 15353879 (Version 1)
Quarter: 2018Q3

REPORT INFORMATION
  Report Type: Spontaneous
  Country: US (occurrence: US)
  Receive Date: 20180905
  Receipt Date: 20180905
  Transmission Date: 20181010
  Serious: Yes (Hospitalization)
  Sender: FDA-Public Use
  Company Number: US-VIFOR (INTERNATIONAL) INC.-VIT-2018-08695

PATIENT
  Age: 69 Year
  Sex: Male

DRUGS (16)
  1. LOSARTAN POTASSIUM. [Concomitant]
     Active Substance: LOSARTAN POTASSIUM
  2. NOVOLOG [Concomitant]
     Active Substance: INSULIN ASPART
  3. CINNAMON. [Concomitant]
     Active Substance: CINNAMON
  4. ASPIRIN. [Concomitant]
     Active Substance: ASPIRIN
  5. ANDROGEL [Concomitant]
     Active Substance: TESTOSTERONE
  6. ASTAXANTHIN [Concomitant]
  7. METOLAZONE. [Concomitant]
     Active Substance: METOLAZONE
  8. CARVEDILOL. [Concomitant]
     Active Substance: CARVEDILOL
  9. VELTASSA [Suspect]
     Active Substance: PATIROMER
     Indication: HYPERKALAEMIA
     Route: 048
     Dates: start: 20161026
  10. FENOFIBRATE. [Concomitant]
     Active Substance: FENOFIBRATE
  11. AMLODIPINE BESY?BENAZEPRIL HCL [Concomitant]
  12. GINGER ROOT [Concomitant]
     Active Substance: GINGER
  13. FERROUS GLUCONATE [Concomitant]
     Active Substance: FERROUS GLUCONATE
  14. BASAGLAR [Concomitant]
     Active Substance: INSULIN GLARGINE
  15. ESTER?C [Concomitant]
     Active Substance: CALCIUM\VITAMINS
  16. VITAMIN D3 [Concomitant]
     Active Substance: CHOLECALCIFEROL

REACTIONS (1)
  - Blood pressure abnormal [Unknown]

NARRATIVE: CASE EVENT DATE: 20180527
